FAERS Safety Report 17282468 (Version 3)
Quarter: 2020Q2

REPORT INFORMATION
  Report Type: Report from Study
  Country: CA (occurrence: CA)
  Receive Date: 20200117
  Receipt Date: 20200507
  Transmission Date: 20200713
  Serious: Yes (Other)
  Sender: FDA-Public Use
  Company Number: CA-AMGEN-CANSL2019161299

PATIENT
  Age: 81 Year
  Sex: Female
  Weight: 43.99 kg

DRUGS (7)
  1. RAMIPRIL. [Concomitant]
     Active Substance: RAMIPRIL
  2. PROLIA [Suspect]
     Active Substance: DENOSUMAB
     Indication: OSTEOPOROSIS POSTMENOPAUSAL
     Dosage: 60 MILLIGRAM PER MILLILITRE, Q6MO
     Route: 065
     Dates: start: 20151006
  3. VITAMIN D [COLECALCIFEROL] [Concomitant]
     Active Substance: CHOLECALCIFEROL
  4. TUMS [Concomitant]
     Active Substance: CALCIUM CARBONATE
  5. HYDROCODONE [Concomitant]
     Active Substance: HYDROCODONE
  6. WARFARIN [Concomitant]
     Active Substance: WARFARIN
  7. AMIODARONE [Concomitant]
     Active Substance: AMIODARONE

REACTIONS (7)
  - Osteonecrosis of jaw [Recovered/Resolved]
  - Localised infection [Unknown]
  - Influenza [Unknown]
  - Osteomyelitis [Unknown]
  - Post procedural infection [Unknown]
  - Gingival disorder [Unknown]
  - Tooth infection [Unknown]

NARRATIVE: CASE EVENT DATE: 2018
